FAERS Safety Report 5442326-9 (Version None)
Quarter: 2007Q3

REPORT INFORMATION
  Report Type: 
  Country: None (occurrence: None)
  Receive Date: 20070904
  Receipt Date: 20070828
  Transmission Date: 20080115
  Serious: Yes (Death, Hospitalization)
  Sender: FDA-Public Use
  Company Number: US-PFIZER INC-2007049561

PATIENT
  Sex: Male
  Weight: 79.3 kg

DRUGS (8)
  1. SUTENT [Suspect]
     Indication: RENAL CELL CARCINOMA STAGE UNSPECIFIED
     Route: 048
     Dates: start: 20070503, end: 20070529
  2. IBUPROFEN [Concomitant]
     Route: 048
  3. TYLENOL W/ CODEINE [Concomitant]
     Route: 048
  4. ZIAC [Concomitant]
     Dosage: TEXT:2.5/6.25 MG
     Route: 048
  5. LOPERAMIDE HYDROCHLORIDE [Concomitant]
     Route: 048
  6. REGLAN [Concomitant]
     Route: 048
     Dates: start: 20070531
  7. K-DUR 10 [Concomitant]
     Route: 048
     Dates: start: 20070531
  8. NAPROSYN [Concomitant]
     Route: 048
     Dates: start: 20070101

REACTIONS (5)
  - ANAEMIA [None]
  - DEATH [None]
  - GASTROINTESTINAL HAEMORRHAGE [None]
  - HICCUPS [None]
  - INFECTION [None]
